FAERS Safety Report 9524406 (Version 1)
Quarter: 2013Q1

REPORT INFORMATION
  Report Type: Spontaneous
  Country: US (occurrence: None)
  Receive Date: 20130314
  Receipt Date: 20130314
  Transmission Date: 20140127
  Serious: Yes (Other)
  Sender: FDA-Public Use
  Company Number: THYM-1003117

PATIENT
  Age: 58 Year
  Sex: Male

DRUGS (4)
  1. THYMOGLOBULIN [Suspect]
     Indication: APLASTIC ANAEMIA
     Dosage: UNK, INTRAVENOUS
     Route: 042
  2. SOLU MEDROL (METHYLPREDNISOLONE SODIUM SUCCINATE) [Concomitant]
  3. CYCLOSPORIN (CICLOSPORIN) [Concomitant]
  4. BENADRYL (ZINC OXIDE) [Concomitant]

REACTIONS (2)
  - Clostridium difficile colitis [None]
  - Infusion related reaction [None]
